FAERS Safety Report 8404822 (Version 2)
Quarter: 2013Q4

REPORT INFORMATION
  Report Type: Report from Study
  Country: JP (occurrence: JP)
  Receive Date: 20120214
  Receipt Date: 20131213
  Transmission Date: 20140711
  Serious: Yes (Hospitalization)
  Sender: FDA-Public Use
  Company Number: JP-ROCHE-1036993

PATIENT
  Age: 44 Year
  Sex: Female

DRUGS (4)
  1. TOCILIZUMAB [Suspect]
     Indication: CASTLEMAN^S DISEASE
     Dosage: ABOUT EIGHT MONTHS
     Route: 041
     Dates: start: 20080512, end: 20090105
  2. TOCILIZUMAB [Suspect]
     Indication: CASTLEMAN^S DISEASE
     Route: 041
     Dates: start: 20090202, end: 20090202
  3. TOCILIZUMAB [Suspect]
     Indication: CASTLEMAN^S DISEASE
     Dosage: DOSAGE IS UNCERTAIN.
     Route: 041
     Dates: start: 20110920
  4. PREDNISOLONE [Concomitant]
     Indication: CASTLEMAN^S DISEASE
     Route: 065
     Dates: end: 20110920

REACTIONS (1)
  - Leukoencephalopathy [Recovered/Resolved]
